FAERS Safety Report 26206478 (Version 1)
Quarter: 2025Q4

REPORT INFORMATION
  Report Type: Spontaneous
  Country: CN (occurrence: CN)
  Receive Date: 20251229
  Receipt Date: 20251229
  Transmission Date: 20260117
  Serious: Yes (Other)
  Sender: STRIDES
  Company Number: CN-STRIDES ARCOLAB LIMITED-2025SP016069

PATIENT
  Age: 53 Year
  Sex: Male

DRUGS (7)
  1. AMLODIPINE [Interacting]
     Active Substance: AMLODIPINE BESYLATE
     Indication: Product used for unknown indication
     Dosage: 5 MILLIGRAM, QD
     Route: 048
  2. OXALIPLATIN [Interacting]
     Active Substance: OXALIPLATIN
     Indication: Rectal cancer
     Dosage: 150 MILLIGRAM, PART OF MFOLFOX REGIMEN
     Route: 065
  3. OXALIPLATIN [Interacting]
     Active Substance: OXALIPLATIN
     Dosage: 150 MILLIGRAM, PART OF MFOLFOX REGIMEN
     Route: 065
  4. FLUOROURACIL [Suspect]
     Active Substance: FLUOROURACIL
     Indication: Rectal cancer
     Dosage: 0.6 GRAM, PART OF MFOLFOX REGIMEN
     Route: 042
  5. FLUOROURACIL [Suspect]
     Active Substance: FLUOROURACIL
     Dosage: CONTINUOUS PUMPING FOR 46 HOURS, PART OF MFOLFOX REGIMEN
     Route: 065
  6. LEUCOVORIN CALCIUM [Suspect]
     Active Substance: LEUCOVORIN CALCIUM
     Indication: Rectal cancer
     Dosage: 600 MILLIGRAM, PART OF MFOLFOX REGIMEN
     Route: 065
  7. LEUCOVORIN CALCIUM [Suspect]
     Active Substance: LEUCOVORIN CALCIUM
     Dosage: 600 MILLIGRAM, PART OF MFOLFOX REGIMEN
     Route: 065

REACTIONS (6)
  - Electrocardiogram ST segment elevation [Recovered/Resolved]
  - Electrocardiogram T wave inversion [Recovered/Resolved]
  - Drug interaction [Unknown]
  - Electrocardiogram abnormal [Recovered/Resolved]
  - Bundle branch block right [Recovered/Resolved]
  - Sinus arrhythmia [Recovered/Resolved]
